FAERS Safety Report 6670950-4 (Version None)
Quarter: 2010Q2

REPORT INFORMATION
  Report Type: 
  Country: None (occurrence: None)
  Receive Date: 20100407
  Receipt Date: 20100330
  Transmission Date: 20101027
  Serious: Yes (Other)
  Sender: FDA-Public Use
  Company Number: FR-SANOFI-AVENTIS-2010SA018853

PATIENT
  Age: 77 Year
  Sex: Male

DRUGS (1)
  1. CLOPIDOGREL BISULFATE [Suspect]
     Route: 048

REACTIONS (3)
  - LIP ULCERATION [None]
  - NEUTROPENIA [None]
  - OFF LABEL USE [None]
